FAERS Safety Report 5390738-4 (Version None)
Quarter: 2007Q3

REPORT INFORMATION
  Report Type: 
  Country: None (occurrence: None)
  Receive Date: 20070718
  Receipt Date: 20070706
  Transmission Date: 20080115
  Serious: Yes (Hospitalization, Other)
  Sender: FDA-Public Use
  Company Number: US-ELI_LILLY_AND_COMPANY-US200707001517

PATIENT
  Age: 88 Year
  Sex: Female

DRUGS (2)
  1. FORTEO [Suspect]
     Indication: OSTEOPOROSIS
     Dates: start: 20070601, end: 20070701
  2. ALEVE [Concomitant]
     Indication: SCIATICA
     Dosage: 2 D/F, 2/D
     Dates: start: 20070601

REACTIONS (6)
  - ASTHENIA [None]
  - FAECES DISCOLOURED [None]
  - FEELING HOT [None]
  - GASTRIC ULCER [None]
  - GASTROINTESTINAL HAEMORRHAGE [None]
  - HAEMOGLOBIN DECREASED [None]
